FAERS Safety Report 9331855 (Version 1)
Quarter: 2013Q2

REPORT INFORMATION
  Report Type: Spontaneous
  Country: US (occurrence: None)
  Receive Date: 20130603
  Receipt Date: 20130603
  Transmission Date: 20140414
  Serious: Yes (Hospitalization)
  Sender: FDA-Public Use
  Company Number: 2013US001438

PATIENT
  Age: 78 Year
  Sex: Male
  Weight: 68 kg

DRUGS (8)
  1. ICLUSIG [Suspect]
     Route: 048
     Dates: start: 20130220, end: 20130328
  2. ALLOPURINOL [Concomitant]
  3. LEVOTHYROXINE [Concomitant]
  4. OMEGA 3 [Concomitant]
  5. ASPIRIN [Concomitant]
  6. MULTIVITAMIN [Concomitant]
  7. KLOR-CON [Concomitant]
  8. FOLIC ACID [Concomitant]

REACTIONS (12)
  - Blood pressure fluctuation [None]
  - Lethargy [None]
  - Atrial fibrillation [None]
  - Atrial flutter [None]
  - Palpitations [None]
  - Headache [None]
  - Tachycardia [None]
  - Dyspnoea [None]
  - Asthenia [None]
  - Memory impairment [None]
  - Hypertension [None]
  - Renal impairment [None]
